FAERS Safety Report 5009987-X (Version None)
Quarter: 2006Q2

REPORT INFORMATION
  Report Type: 
  Country: None (occurrence: None)
  Receive Date: 20060522
  Receipt Date: 20060515
  Transmission Date: 20061013
  Serious: Yes (Other)
  Sender: FDA-Public Use
  Company Number: 2006-05-1255

PATIENT
  Age: 6 Year
  Sex: Female

DRUGS (1)
  1. DIPROSPAN (BETAMETHASONE SODIUM PHOSPHATE/DIPROPIONA [Suspect]
     Indication: URTICARIA
     Dosage: 0.5 ML INTRAMUSCULAR
     Route: 030
     Dates: start: 20060512, end: 20060512

REACTIONS (4)
  - CARDIAC DISORDER [None]
  - HYPOTENSION [None]
  - SYNCOPE [None]
  - TIC [None]
